FAERS Safety Report 7581084-9 (Version None)
Quarter: 2011Q2

REPORT INFORMATION
  Report Type: 
  Country: None (occurrence: None)
  Receive Date: 20110629
  Receipt Date: 20110623
  Transmission Date: 20111010
  Serious: Yes (Death)
  Sender: FDA-Public Use
  Company Number: PHHY2011AU56700

PATIENT
  Age: 34 Year

DRUGS (5)
  1. QUETIAPINE [Suspect]
     Dosage: UNK
  2. ACETAMINOPHEN [Suspect]
     Dosage: UNK
  3. TRAMADOL HCL [Suspect]
     Dosage: UNK
  4. CHLORPROMAZINE [Suspect]
  5. METHADONE HCL [Suspect]
     Dosage: UNK

REACTIONS (6)
  - DYSPNOEA [None]
  - SNORING [None]
  - ACCIDENTAL POISONING [None]
  - OVERDOSE [None]
  - ARTERIOSCLEROSIS CORONARY ARTERY [None]
  - TOXICITY TO VARIOUS AGENTS [None]
